APPROVED DRUG PRODUCT: PLACIDYL
Active Ingredient: ETHCHLORVYNOL
Strength: 750MG
Dosage Form/Route: CAPSULE;ORAL
Application: N010021 | Product #010
Applicant: ABBVIE INC
Approved: Approved Prior to Jan 1, 1982 | RLD: No | RS: No | Type: DISCN